FAERS Safety Report 24405385 (Version 1)
Quarter: 2024Q4

REPORT INFORMATION
  Report Type: Spontaneous
  Country: US (occurrence: US)
  Receive Date: 20241007
  Receipt Date: 20241007
  Transmission Date: 20250115
  Serious: Yes (Other)
  Sender: AUROBINDO
  Company Number: US-AUROBINDO-AUR-APL-2024-047817

PATIENT
  Age: 6 Year
  Sex: Male

DRUGS (5)
  1. CLOFARABINE [Suspect]
     Active Substance: CLOFARABINE
     Indication: Juvenile xanthogranuloma
     Dosage: TWO CYCLES
     Route: 065
  2. PREDNISONE [Suspect]
     Active Substance: PREDNISONE
     Indication: Juvenile xanthogranuloma
     Dosage: UNK
     Route: 048
  3. VINBLASTINE [Suspect]
     Active Substance: VINBLASTINE
     Indication: Juvenile xanthogranuloma
     Dosage: UNK
     Route: 042
  4. TRAMETINIB [Concomitant]
     Active Substance: TRAMETINIB
     Indication: Off label use
     Dosage: 2 MILLIGRAM, DAILY (ADJUSTED UPWARDS, TOTAL OF 18 MONTHS)
     Route: 048
  5. TRAMETINIB [Concomitant]
     Active Substance: TRAMETINIB
     Indication: Juvenile xanthogranuloma

REACTIONS (1)
  - Drug ineffective [Unknown]
